FAERS Safety Report 9516584 (Version 2)
Quarter: 2013Q4

REPORT INFORMATION
  Report Type: Spontaneous
  Country: US (occurrence: US)
  Receive Date: 20130911
  Receipt Date: 20131002
  Transmission Date: 20140711
  Serious: Yes (Other)
  Sender: FDA-Public Use
  Company Number: US-GLAXOSMITHKLINE-A1012054B

PATIENT
  Sex: Male

DRUGS (12)
  1. ZOFRAN [Suspect]
     Indication: PROPHYLAXIS OF NAUSEA AND VOMITING
     Dosage: 4MG PER DAY
     Route: 064
     Dates: start: 20120311, end: 201205
  2. MORPHINE [Suspect]
     Indication: RAYNAUD^S PHENOMENON
     Route: 064
  3. PREDNISONE [Suspect]
     Indication: RAYNAUD^S PHENOMENON
     Route: 064
  4. PRENATAL VITAMIN [Concomitant]
     Route: 064
  5. TYLENOL [Concomitant]
     Indication: PAIN IN EXTREMITY
     Route: 064
  6. EPSOM SALT [Concomitant]
     Indication: PAIN IN EXTREMITY
     Route: 064
  7. UNKNOWN MEDICATION [Concomitant]
     Route: 064
  8. BENADRYL [Concomitant]
  9. OXYTOCIN [Concomitant]
  10. OXYCODONE [Concomitant]
  11. NORTRIPTYLINE [Concomitant]
  12. STEROID SHOT [Concomitant]

REACTIONS (3)
  - Kidney malformation [Not Recovered/Not Resolved]
  - Renal impairment [Not Recovered/Not Resolved]
  - Foetal exposure during pregnancy [Unknown]
